FAERS Safety Report 15728886 (Version 1)
Quarter: 2018Q4

REPORT INFORMATION
  Report Type: Spontaneous
  Country: TW (occurrence: TW)
  Receive Date: 20181217
  Receipt Date: 20181217
  Transmission Date: 20190205
  Serious: Yes (Hospitalization)
  Sender: FDA-Public Use
  Company Number: TW-MYLANLABS-2018M1090959

PATIENT
  Age: 81 Year
  Sex: Male

DRUGS (1)
  1. LITHIUM. [Suspect]
     Active Substance: LITHIUM
     Indication: BIPOLAR DISORDER
     Dosage: HE WAS RECEIVING LITHIUM FOR MORE THAN 30 YEARS
     Route: 065

REACTIONS (7)
  - Atrioventricular block first degree [Unknown]
  - Altered state of consciousness [Recovering/Resolving]
  - Cardiogenic shock [Recovering/Resolving]
  - Dysarthria [Recovering/Resolving]
  - Toxicity to various agents [Recovering/Resolving]
  - Choking [Unknown]
  - Bradycardia [Recovering/Resolving]
